FAERS Safety Report 7377422-2 (Version None)
Quarter: 2011Q1

REPORT INFORMATION
  Report Type: 
  Country: None (occurrence: None)
  Receive Date: 20110328
  Receipt Date: 20110314
  Transmission Date: 20110831
  Serious: Yes (Other)
  Sender: FDA-Public Use
  Company Number: CA-JNJFOC-20110307273

PATIENT
  Sex: Female
  Weight: 123 kg

DRUGS (17)
  1. REMICADE [Suspect]
     Indication: PSORIASIS
     Dosage: 12TH INFUSION ON 14-MAR-2011
     Route: 042
  2. ATIVAN [Concomitant]
     Indication: PREMEDICATION
     Route: 048
  3. NOVO-SPIROTON [Concomitant]
     Route: 065
  4. INSULIN [Concomitant]
     Route: 065
  5. CARVEDILOL [Concomitant]
     Route: 065
  6. PROZAC [Concomitant]
     Route: 065
  7. OXYBUTYNIN [Concomitant]
     Route: 065
  8. NEXIUM [Concomitant]
     Route: 065
  9. METHADONE [Concomitant]
     Route: 065
  10. FUROSEMIDE [Concomitant]
     Route: 065
  11. BENADRYL [Concomitant]
     Indication: PREMEDICATION
     Route: 042
  12. TRAZODONE [Concomitant]
     Route: 065
  13. AMITRIPTYLINE HCL [Concomitant]
     Route: 065
  14. RAMIPRIL [Concomitant]
     Route: 065
  15. SEROQUEL [Concomitant]
     Route: 065
  16. SYNTHROID [Concomitant]
     Route: 065
  17. PREDNISONE [Concomitant]
     Route: 065

REACTIONS (7)
  - CHILLS [None]
  - MUSCLE SPASMS [None]
  - FEELING HOT [None]
  - FLUSHING [None]
  - INFUSION RELATED REACTION [None]
  - HEADACHE [None]
  - NECK PAIN [None]
